FAERS Safety Report 5359017-5 (Version None)
Quarter: 2007Q2

REPORT INFORMATION
  Report Type: 
  Country: None (occurrence: None)
  Receive Date: 20070615
  Receipt Date: 20070606
  Transmission Date: 20071010
  Serious: Yes (Other)
  Sender: FDA-Public Use
  Company Number: US-MERCK-0706USA01017

PATIENT
  Age: 90 Year
  Sex: Female

DRUGS (6)
  1. CANCIDAS [Suspect]
     Indication: CANDIDIASIS
     Route: 042
     Dates: start: 20070606
  2. HYDROXYZINE HYDROCHLORIDE [Concomitant]
     Route: 065
  3. LOVENOX [Concomitant]
     Route: 065
  4. FLAGYL [Concomitant]
     Route: 065
  5. PROTONIX [Concomitant]
     Route: 065
  6. LEVOTHYROXINE SODIUM [Concomitant]
     Route: 065

REACTIONS (1)
  - HYPOTENSION [None]
